FAERS Safety Report 8531986-1 (Version None)
Quarter: 2012Q3

REPORT INFORMATION
  Report Type: 
  Country: None (occurrence: None)
  Receive Date: 20120723
  Receipt Date: 20120718
  Transmission Date: 20120928
  Serious: Yes (Death)
  Sender: FDA-Public Use
  Company Number: CHPA2012US015506

PATIENT
  Sex: Male

DRUGS (1)
  1. DESENEX [Suspect]
     Indication: SKIN ODOUR ABNORMAL
     Dosage: UNK, ^ALL THE TIME^
     Route: 061
     Dates: start: 19620101

REACTIONS (2)
  - OFF LABEL USE [None]
  - CARDIAC DISORDER [None]
